FAERS Safety Report 8442992-X (Version None)
Quarter: 2012Q2

REPORT INFORMATION
  Report Type: 
  Country: None (occurrence: None)
  Receive Date: 20120615
  Receipt Date: 20120531
  Transmission Date: 20120825
  Serious: No
  Sender: FDA-Public Use
  Company Number: US-ASTRAZENECA-2012SE36913

PATIENT
  Age: 39 Year
  Sex: Male

DRUGS (2)
  1. CRESTOR [Suspect]
     Indication: LOW DENSITY LIPOPROTEIN INCREASED
     Route: 048
  2. CRESTOR [Suspect]
     Route: 048

REACTIONS (3)
  - LOW DENSITY LIPOPROTEIN INCREASED [None]
  - THERAPY CESSATION [None]
  - CHEST PAIN [None]
